FAERS Safety Report 13725460 (Version 3)
Quarter: 2017Q3

REPORT INFORMATION
  Report Type: Spontaneous
  Country: US (occurrence: US)
  Receive Date: 20170706
  Receipt Date: 20170728
  Transmission Date: 20171127
  Serious: No
  Sender: FDA-Public Use
  Company Number: US-PFIZER INC-2017288488

PATIENT

DRUGS (2)
  1. PANTOPRAZOLE [Suspect]
     Active Substance: PANTOPRAZOLE
     Dosage: UNK
  2. PANTOPRAZOLE [Suspect]
     Active Substance: PANTOPRAZOLE
     Dosage: UNK

REACTIONS (5)
  - Arthralgia [Recovering/Resolving]
  - Bone pain [Recovering/Resolving]
  - Gait disturbance [Unknown]
  - Drug ineffective [Unknown]
  - Dizziness [Recovering/Resolving]
